FAERS Safety Report 16092594 (Version 2)
Quarter: 2019Q2

REPORT INFORMATION
  Report Type: Spontaneous
  Country: CZ (occurrence: CZ)
  Receive Date: 20190319
  Receipt Date: 20190518
  Transmission Date: 20190711
  Serious: Yes (Other)
  Sender: FDA-Public Use
  Company Number: PHHY2019CZ059794

PATIENT
  Age: 76 Year
  Sex: Male

DRUGS (7)
  1. TAFINLAR [Suspect]
     Active Substance: DABRAFENIB MESYLATE
     Indication: BRAF GENE MUTATION
     Dosage: 150 MG, BID (75 MG 2-0-2)
     Route: 048
     Dates: start: 20180223, end: 20180404
  2. TAFINLAR [Suspect]
     Active Substance: DABRAFENIB MESYLATE
     Dosage: 300 MG, QD, 75 MG (2-0-2)
     Route: 048
     Dates: start: 20180503
  3. MEKINIST [Suspect]
     Active Substance: TRAMETINIB DIMETHYL SULFOXIDE
     Indication: MALIGNANT MELANOMA
     Dosage: UNK (DOSE REDUCED TO 25 PERECENT)
     Route: 048
     Dates: end: 20180501
  4. TAFINLAR [Suspect]
     Active Substance: DABRAFENIB MESYLATE
     Dosage: 100 MG, BID (REDUCTION OF DOSE)
     Route: 048
  5. MEKINIST [Suspect]
     Active Substance: TRAMETINIB DIMETHYL SULFOXIDE
     Dosage: 1.5 MG, QD (DOSE REDUCTION)
     Route: 048
  6. TAFINLAR [Suspect]
     Active Substance: DABRAFENIB MESYLATE
     Indication: MALIGNANT MELANOMA
     Dosage: 225 MG, QD (75 MG, 2-0-1)
     Route: 048
     Dates: start: 20180405, end: 20180502
  7. MEKINIST [Suspect]
     Active Substance: TRAMETINIB DIMETHYL SULFOXIDE
     Indication: BRAF GENE MUTATION
     Dosage: 2 MG, UNK
     Route: 048
     Dates: start: 20180705

REACTIONS (14)
  - Cerebral ischaemia [Unknown]
  - Influenza [Recovered/Resolved]
  - Fatigue [Unknown]
  - Cerebrovascular accident [Recovered/Resolved]
  - Nausea [Recovered/Resolved]
  - Influenza [Recovered/Resolved]
  - Metastases to skin [Unknown]
  - Aphasia [Unknown]
  - Pyrexia [Recovered/Resolved]
  - Vomiting [Recovered/Resolved]
  - Tumour haemorrhage [Unknown]
  - Venous thrombosis [Unknown]
  - Hemiparesis [Unknown]
  - Pulmonary embolism [Unknown]

NARRATIVE: CASE EVENT DATE: 2018
